FAERS Safety Report 10628852 (Version 1)
Quarter: 2014Q4

REPORT INFORMATION
  Report Type: Spontaneous
  Country: US (occurrence: US)
  Receive Date: 20141205
  Receipt Date: 20141205
  Transmission Date: 20150529
  Serious: No
  Sender: FDA-Public Use
  Company Number: US-BRISTOL-MYERS SQUIBB COMPANY-21504600

PATIENT
  Sex: Female

DRUGS (6)
  1. VITAMIN B12 [Concomitant]
     Active Substance: CYANOCOBALAMIN
  2. ATENOLOL. [Concomitant]
     Active Substance: ATENOLOL
  3. COUMADIN [Suspect]
     Active Substance: WARFARIN SODIUM
  4. ATIVAN [Concomitant]
     Active Substance: LORAZEPAM
  5. NEURONTIN [Concomitant]
     Active Substance: GABAPENTIN
  6. ELIQUIS [Suspect]
     Active Substance: APIXABAN

REACTIONS (1)
  - Vasodilatation [Unknown]
